FAERS Safety Report 25660475 (Version 1)
Quarter: 2025Q3

REPORT INFORMATION
  Report Type: Spontaneous
  Country: US (occurrence: US)
  Receive Date: 20250808
  Receipt Date: 20250808
  Transmission Date: 20251021
  Serious: No
  Sender: MYLAN
  Company Number: US-MYLANLABS-2025M1065045

PATIENT
  Sex: Female

DRUGS (16)
  1. LYRICA [Suspect]
     Active Substance: PREGABALIN
     Indication: Product used for unknown indication
  2. COVID-19 vaccine [Concomitant]
  3. ASPIRIN [Concomitant]
     Active Substance: ASPIRIN
  4. AMLODIPINE [Concomitant]
     Active Substance: AMLODIPINE BESYLATE
  5. OXYBUTYNIN [Concomitant]
     Active Substance: OXYBUTYNIN
  6. ELIQUIS [Concomitant]
     Active Substance: APIXABAN
  7. BENAZEPRIL [Concomitant]
     Active Substance: BENAZEPRIL HYDROCHLORIDE
  8. PRAVASTATIN [Concomitant]
     Active Substance: PRAVASTATIN
  9. PRAMIPEXOLE [Concomitant]
     Active Substance: PRAMIPEXOLE
  10. HYDROCODONE [Concomitant]
     Active Substance: HYDROCODONE
  11. NITROGLYCERIN [Concomitant]
     Active Substance: NITROGLYCERIN
  12. TORSEMIDE [Concomitant]
     Active Substance: TORSEMIDE
  13. METOPROLOL [Concomitant]
     Active Substance: METOPROLOL
  14. DIGOXIN [Concomitant]
     Active Substance: DIGOXIN
  15. VITAMIN D [Concomitant]
     Active Substance: VITAMIN D NOS
  16. MELOXICAM [Concomitant]
     Active Substance: MELOXICAM

REACTIONS (2)
  - Muscular weakness [Not Recovered/Not Resolved]
  - Dizziness [Not Recovered/Not Resolved]
